FAERS Safety Report 21555881 (Version 1)
Quarter: 2022Q4

REPORT INFORMATION
  Report Type: Spontaneous
  Country: NL (occurrence: NL)
  Receive Date: 20221104
  Receipt Date: 20221104
  Transmission Date: 20230112
  Serious: Yes (Hospitalization)
  Sender: FDA-Public Use
  Company Number: None

PATIENT
  Sex: Female
  Weight: 49.9 kg

DRUGS (8)
  1. DICLOFENAC POTASSIUM [Suspect]
     Active Substance: DICLOFENAC POTASSIUM
     Indication: Neuralgia
     Dosage: 75 MILLIGRAM DAILY; 3X A DAY 1 PIECE, BRAND NAME NOT SPECIFIED
     Route: 065
     Dates: start: 20220923, end: 20221001
  2. ATORVASTATIN [Concomitant]
     Active Substance: ATORVASTATIN
     Indication: Product used for unknown indication
     Dosage: 20 MG (MILLIGRAM), FORM STRENGTH : 20 MG, THERAPY START AND END DATE: ASKU, BRAND NAME NOT SPECIFIED
  3. CLOPIDOGREL [Concomitant]
     Active Substance: CLOPIDOGREL BISULFATE
     Indication: Product used for unknown indication
     Dosage: 75 MG (MILLIGRAM), FORM STRENGTH : 75 MG, BRAND NAME NOT SPECIFIED, THERAPY START AND END DATE: ASKU
  4. CLOPIDOGREL [Concomitant]
     Active Substance: CLOPIDOGREL BISULFATE
     Dosage: 75 MG (MILLIGRAM), FORM STRENGTH : 75 MG, BRAND NAME NOT SPECIFIED, THERAPY START AND END DATE: ASKU
  5. TRAMADOL [Concomitant]
     Active Substance: TRAMADOL
     Indication: Product used for unknown indication
     Dosage: 50 MG (MILLIGRAM), FORM STRENGTH : 50 MG, BRAND NAME NOT SPECIFIED, THERAPY START AND END DATE: ASKU
  6. NAPROXEN [Concomitant]
     Active Substance: NAPROXEN
     Indication: Product used for unknown indication
     Dosage: 500 MG (MILLIGRAM), FORM STRENGTH : 500 MG, BRAND NAME NOT SPECIFIED, THERAPY START AND END DATE: AS
  7. ACETAMINOPHEN [Concomitant]
     Active Substance: ACETAMINOPHEN
     Indication: Product used for unknown indication
     Dosage: 500 MG (MILLIGRAM), FORM STRENGTH : 500 MG, BRAND NAME NOT SPECIFIED, THERAPY START AND END DATE: AS
     Route: 065
  8. PANTOPRAZOLE SODIUM [Concomitant]
     Active Substance: PANTOPRAZOLE SODIUM
     Indication: Product used for unknown indication
     Dosage: 20 MG (MILLIGRAM), PANTOPRAZOL TABLET MSR 20MG / BRAND NAME NOT SPECIFIED, THERAPY START AND END DAT

REACTIONS (1)
  - Rectal haemorrhage [Recovering/Resolving]
